FAERS Safety Report 4339041-1 (Version None)
Quarter: 2004Q2

REPORT INFORMATION
  Report Type: 
  Country: None (occurrence: None)
  Receive Date: 20040412
  Receipt Date: 20031231
  Transmission Date: 20050107
  Serious: Yes (Hospitalization)
  Sender: FDA-Public Use
  Company Number: 7146

PATIENT
  Age: 73 Year
  Sex: Male

DRUGS (5)
  1. LEUCOVORIN CALCIUM [Suspect]
     Indication: COLORECTAL CANCER METASTATIC
     Dosage: 200 MG/M2 DAILY IV
     Route: 042
     Dates: start: 20031002, end: 20031002
  2. CETUXIMAB [Suspect]
     Indication: COLORECTAL CANCER METASTATIC
     Dosage: 250 MG/M2 WEEKLY IV
     Route: 042
     Dates: start: 20031009, end: 20031009
  3. FLUOROURACIL [Suspect]
     Indication: COLORECTAL CANCER METASTATIC
     Dosage: 400 MG/M2 DAILY IV
     Route: 042
     Dates: start: 20031002, end: 20031002
  4. FLUOROURACIL [Suspect]
     Indication: COLORECTAL CANCER METASTATIC
     Dosage: 600 MG/M2 DAILY IV
     Route: 042
     Dates: start: 20031009, end: 20031009
  5. OXALIPLATIN [Suspect]
     Indication: COLORECTAL CANCER METASTATIC
     Dosage: 85 MG/M2 PER_CYCLE IV
     Route: 042
     Dates: start: 20031002, end: 20031002

REACTIONS (16)
  - ANOREXIA [None]
  - ASTHENIA [None]
  - BLOOD CREATININE INCREASED [None]
  - DIARRHOEA [None]
  - DIZZINESS [None]
  - FAECAL INCONTINENCE [None]
  - HYPERKALAEMIA [None]
  - HYPOTENSION [None]
  - MARKEDLY REDUCED DIETARY INTAKE [None]
  - METABOLIC ACIDOSIS [None]
  - NAUSEA [None]
  - PERFORMANCE STATUS DECREASED [None]
  - SINUS ARRHYTHMIA [None]
  - SUPRAVENTRICULAR TACHYCARDIA [None]
  - SYNCOPE [None]
  - VOMITING [None]
